FAERS Safety Report 7684791 (Version 6)
Quarter: 2013Q3

REPORT INFORMATION
  Report Type: Report from Study
  Country: DE (occurrence: DE)
  Receive Date: 20101129
  Receipt Date: 20130726
  Transmission Date: 20140515
  Serious: Yes (Hospitalization)
  Sender: FDA-Public Use
  Company Number: DE-ROCHE-741161

PATIENT
  Age: 73 Year
  Sex: Female
  Weight: 66 kg

DRUGS (16)
  1. TRASTUZUMAB [Suspect]
     Indication: HER-2 POSITIVE BREAST CANCER
     Dosage: DOSE LEVEL: 6 MG/KG, FORM: VIAL, LAST DOSE PRIOR TO SAE 21 OCTOBER 2010
     Route: 042
  2. TRASTUZUMAB [Suspect]
     Dosage: TOTAL DOSE: 410 MG, DATE OF LAST DOSE PRIOR TO SAE: 11 NOVEMBER 2010
     Route: 042
  3. BEVACIZUMAB [Suspect]
     Indication: HER-2 POSITIVE BREAST CANCER
     Dosage: DOSE LEVEL: 15 MG/KG, FORM: VIAL, LAST DOSE PRIOR TO SAE 21 OCTOBER 2010
     Route: 042
  4. BEVACIZUMAB [Suspect]
     Dosage: TOTAL DOSE: 1026 MG, DATE OF LAST DOSE PRIOR TO SAE: 11 NOVEMBER 2010
     Route: 042
  5. CARBOPLATIN [Suspect]
     Indication: HER-2 POSITIVE BREAST CANCER
     Dosage: DOSE LEVEL: 6 AUC, FORM: VIAL, LAST DOSE PRIOR TO SAE 21 OCTOBER 2010
     Route: 042
  6. CARBOPLATIN [Suspect]
     Dosage: DOSE LEVEL: 6 AUC, DATE OF LAST DOSE PRIOR TO SAE: 11 NOVEMBER 2010
     Route: 042
  7. DOCETAXEL [Suspect]
     Indication: HER-2 POSITIVE BREAST CANCER
     Dosage: DOSE LEVEL: 75 MG/M2. FORM: VIAL, LAST DOSE PRIOR TO SAE 21 OCTOBER 2010
     Route: 042
  8. DOCETAXEL [Suspect]
     Dosage: TOTAL DOSE: 135.25 MG, DATE OF LAST DOSE PRIOR TO SAE: 11 NOVEMBER 2010
     Route: 042
  9. CANDESARTAN [Concomitant]
     Route: 065
  10. SIMVASTATIN [Concomitant]
     Route: 065
  11. ATACAND [Concomitant]
     Indication: CARDIAC DISORDER
     Route: 065
     Dates: start: 1993
  12. DALTEPARIN SODIUM [Concomitant]
     Dosage: 2500 I. E.
     Route: 065
     Dates: start: 20101118, end: 20101120
  13. DARBEPOETIN ALFA [Concomitant]
     Route: 065
     Dates: start: 20101118, end: 20101118
  14. VALIUM [Concomitant]
     Route: 065
     Dates: start: 20101119, end: 20101119
  15. CIPROFLOXACIN [Concomitant]
     Route: 065
     Dates: start: 20101118
  16. LOPERAMIDE [Concomitant]
     Route: 065
     Dates: start: 20101119, end: 20101120

REACTIONS (3)
  - Neutropenia [Recovered/Resolved]
  - Diarrhoea [Recovered/Resolved]
  - Pancytopenia [Recovered/Resolved]
